FAERS Safety Report 9878169 (Version 2)
Quarter: 2014Q2

REPORT INFORMATION
  Report Type: Spontaneous
  Country: US (occurrence: None)
  Receive Date: 20140204
  Receipt Date: 20140521
  Transmission Date: 20141212
  Serious: Yes (Hospitalization, Other)
  Sender: FDA-Public Use
  Company Number: 2014-US-000954

PATIENT
  Age: 55 Year
  Sex: Male
  Weight: 90.7 kg

DRUGS (2)
  1. XYREM (SODIUM OXYBATE) ORAL SOLUTION, 500MG/ML [Suspect]
     Indication: SLEEP DISORDER
     Route: 048
     Dates: start: 200402
  2. DOXEPIN [Suspect]
     Indication: SLEEP DISORDER

REACTIONS (6)
  - Surgery [None]
  - Weight increased [None]
  - Fatigue [None]
  - Incorrect dose administered [None]
  - Intervertebral disc protrusion [None]
  - Off label use [None]
